FAERS Safety Report 23789932 (Version 1)
Quarter: 2024Q2

REPORT INFORMATION
  Report Type: Spontaneous
  Country: US (occurrence: None)
  Receive Date: 20240424
  Receipt Date: 20240424
  Transmission Date: 20240716
  Serious: Yes (Hospitalization)
  Sender: FDA-Public Use
  Company Number: None

PATIENT
  Age: 85 Year
  Sex: Male

DRUGS (1)
  1. SEMAGLUTIDE [Suspect]
     Active Substance: SEMAGLUTIDE
     Indication: Diabetes mellitus
     Dosage: 0.5 MG QWEEK SQ
     Route: 058
     Dates: start: 20230525, end: 20240104

REACTIONS (7)
  - Dizziness [None]
  - Syncope [None]
  - Hypernatraemia [None]
  - Blood pressure orthostatic [None]
  - Presyncope [None]
  - Atrioventricular block first degree [None]
  - Therapy interrupted [None]

NARRATIVE: CASE EVENT DATE: 20240129
